FAERS Safety Report 14100298 (Version 1)
Quarter: 2017Q4

REPORT INFORMATION
  Report Type: Spontaneous
  Country: US (occurrence: US)
  Receive Date: 20171017
  Receipt Date: 20171017
  Transmission Date: 20180321
  Serious: Yes (Other)
  Sender: FDA-Public Use
  Company Number: US-SMITH AND NEPHEW, INC-2017SMT00552

PATIENT
  Sex: Female

DRUGS (1)
  1. COLLAGENASE SANTYL [Suspect]
     Active Substance: COLLAGENASE CLOSTRIDIUM HISTOLYTICUM
     Indication: WOUND NECROSIS
     Route: 061

REACTIONS (4)
  - Wound decomposition [Unknown]
  - Wound dehiscence [Unknown]
  - Wound complication [Unknown]
  - Drug administered at inappropriate site [Unknown]
